FAERS Safety Report 25918743 (Version 4)
Quarter: 2025Q4

REPORT INFORMATION
  Report Type: Spontaneous
  Country: US (occurrence: US)
  Receive Date: 20251014
  Receipt Date: 20251127
  Transmission Date: 20260118
  Serious: No
  Sender: LUPIN
  Company Number: US-LUPIN PHARMACEUTICALS INC.-2025-09204

PATIENT
  Age: 24 Year

DRUGS (1)
  1. FYAVOLV [Suspect]
     Active Substance: ETHINYL ESTRADIOL\NORETHINDRONE ACETATE
     Indication: Contraception
     Dosage: 1 DOSAGE FORM, QD

REACTIONS (2)
  - Menstruation irregular [Unknown]
  - Drug ineffective [Unknown]
